FAERS Safety Report 9178646 (Version 1)
Quarter: 2013Q1

REPORT INFORMATION
  Report Type: Spontaneous
  Country: IT (occurrence: IT)
  Receive Date: 20130321
  Receipt Date: 20130321
  Transmission Date: 20140127
  Serious: Yes (Hospitalization)
  Sender: FDA-Public Use
  Company Number: IT-BRISTOL-MYERS SQUIBB COMPANY-18595736

PATIENT
  Age: 81 Year
  Sex: Male

DRUGS (10)
  1. METFORMIN HCL [Suspect]
     Indication: DIABETES MELLITUS
     Route: 048
     Dates: start: 20100101, end: 20121227
  2. ASCRIPTIN [Concomitant]
     Indication: ATRIAL FIBRILLATION
  3. ALUMINUM HYDROXIDE [Concomitant]
     Indication: ATRIAL FIBRILLATION
  4. MAGNESIUM HYDROXIDE [Concomitant]
     Indication: ATRIAL FIBRILLATION
  5. CORDARONE [Concomitant]
     Indication: ATRIAL FIBRILLATION
  6. NORVASC [Concomitant]
     Indication: ATRIAL FIBRILLATION
  7. TOTALIP [Concomitant]
  8. OMNIC [Concomitant]
     Route: 048
  9. LANSOPRAZOLE [Concomitant]
  10. OLMESARTAN MEDOXOMIL + HCTZ [Concomitant]
     Indication: HYPERTENSION

REACTIONS (1)
  - Renal failure acute [Recovered/Resolved]
